FAERS Safety Report 6534585-6 (Version None)
Quarter: 2010Q1

REPORT INFORMATION
  Report Type: 
  Country: None (occurrence: None)
  Receive Date: 20100112
  Receipt Date: 20100107
  Transmission Date: 20100710
  Serious: Yes (Other)
  Sender: FDA-Public Use
  Company Number: A0838308A

PATIENT
  Age: 60 Year
  Sex: Female

DRUGS (7)
  1. VOTRIENT [Suspect]
     Dosage: 800MG PER DAY
     Route: 048
     Dates: start: 20091127, end: 20091224
  2. LISINOPRIL [Concomitant]
  3. STOOL SOFTENER [Concomitant]
  4. HYDROCODONE [Concomitant]
  5. OXYCONTIN [Concomitant]
  6. ONDANSETRON [Concomitant]
  7. LOVASTATIN [Concomitant]

REACTIONS (3)
  - BONE NEOPLASM MALIGNANT [None]
  - METASTASIS [None]
  - PAIN [None]
